FAERS Safety Report 6573723-6 (Version None)
Quarter: 2010Q1

REPORT INFORMATION
  Report Type: 
  Country: None (occurrence: None)
  Receive Date: 20100208
  Receipt Date: 20100202
  Transmission Date: 20100710
  Serious: Yes (Death)
  Sender: FDA-Public Use
  Company Number: A0843103A

PATIENT
  Age: 86 Year
  Sex: Female

DRUGS (4)
  1. PROMACTA [Suspect]
     Indication: THROMBOCYTOPENIA
     Dates: end: 20091117
  2. PLATELETS [Concomitant]
  3. COUMADIN [Concomitant]
     Indication: ATRIAL FIBRILLATION
  4. AZACYTIDINE [Concomitant]
     Indication: MYELODYSPLASTIC SYNDROME

REACTIONS (3)
  - DEATH [None]
  - DISEASE PROGRESSION [None]
  - HAEMATOLOGICAL MALIGNANCY [None]
